FAERS Safety Report 6148854-5 (Version None)
Quarter: 2009Q2

REPORT INFORMATION
  Report Type: 
  Country: None (occurrence: None)
  Receive Date: 20090408
  Receipt Date: 20090331
  Transmission Date: 20091009
  Serious: Yes (Hospitalization)
  Sender: FDA-Public Use
  Company Number: FR-MERCK-0903FRA00118

PATIENT
  Age: 88 Year
  Sex: Female

DRUGS (9)
  1. NORFLOXACIN [Suspect]
     Indication: CYSTITIS
     Route: 048
     Dates: start: 20081209, end: 20081216
  2. FUROSEMIDE [Concomitant]
     Indication: HYPERTENSION
     Route: 048
     Dates: end: 20081220
  3. URAPIDIL [Concomitant]
     Indication: HYPERTENSION
     Route: 048
     Dates: start: 20081214, end: 20081220
  4. GLIMEPIRIDE [Suspect]
     Indication: TYPE 2 DIABETES MELLITUS
     Route: 048
     Dates: end: 20081220
  5. GLIMEPIRIDE [Suspect]
     Route: 048
     Dates: start: 20090110, end: 20090112
  6. ALLOPURINOL [Suspect]
     Indication: GOUT
     Route: 048
     Dates: start: 20081206, end: 20081217
  7. METFORMIN HYDROCHLORIDE [Suspect]
     Indication: TYPE 2 DIABETES MELLITUS
     Route: 048
     Dates: end: 20081220
  8. METFORMIN HYDROCHLORIDE [Suspect]
     Route: 048
     Dates: start: 20090105, end: 20090116
  9. POTASSIUM CHLORIDE [Concomitant]
     Route: 048
     Dates: start: 20081209, end: 20081220

REACTIONS (3)
  - GINGIVAL BLEEDING [None]
  - PURPURA [None]
  - THROMBOCYTOPENIA [None]
